FAERS Safety Report 10456174 (Version 3)
Quarter: 2015Q1

REPORT INFORMATION
  Report Type: Spontaneous
  Country: JP (occurrence: JP)
  Receive Date: 20140916
  Receipt Date: 20150224
  Transmission Date: 20150720
  Serious: Yes (Death)
  Sender: FDA-Public Use
  Company Number: JP-ROCHE-1462368

PATIENT
  Age: 79 Year
  Sex: Female
  Weight: 38 kg

DRUGS (6)
  1. AVASTIN [Suspect]
     Active Substance: BEVACIZUMAB
     Indication: BREAST CANCER
     Dosage: TREATMENT LINE: 3RD COMPLETED TREATMENT CYCLE NUMBER: 1, MOST RECENT DOSE 15/AUG/2014
     Route: 041
     Dates: start: 20140718, end: 20140815
  2. HERCEPTIN [Concomitant]
     Active Substance: TRASTUZUMAB
     Indication: BREAST CANCER
     Dosage: LAST DOSE PRIOR TO THE EVENT: 25/APR/2014
     Route: 041
     Dates: start: 20140404
  3. KADCYLA [Suspect]
     Active Substance: ADO-TRASTUZUMAB EMTANSINE
     Indication: BREAST CANCER
     Dosage: LAST DOSE PRIOR TO THE EVENT: 13/JUN/2014
     Route: 041
     Dates: start: 20140523
  4. PACLITAXEL. [Concomitant]
     Active Substance: PACLITAXEL
     Indication: BREAST CANCER
     Dosage: COMPLETED TREATMENT CYCLE NUMBER: 1
     Route: 041
     Dates: start: 20140718, end: 20140815
  5. PERJETA [Suspect]
     Active Substance: PERTUZUMAB
     Indication: BREAST CANCER
     Dosage: 420MG/14ML
     Route: 041
     Dates: start: 20140404, end: 20140404
  6. PERJETA [Suspect]
     Active Substance: PERTUZUMAB
     Dosage: 420MG/14ML
     Route: 041
     Dates: start: 20140425, end: 20140425

REACTIONS (3)
  - Decreased appetite [Unknown]
  - Cardiac failure acute [Fatal]
  - Acute myocardial infarction [Fatal]

NARRATIVE: CASE EVENT DATE: 20140831
